FAERS Safety Report 16683097 (Version 9)
Quarter: 2020Q1

REPORT INFORMATION
  Report Type: Spontaneous
  Country: US (occurrence: US)
  Receive Date: 20190808
  Receipt Date: 20200330
  Transmission Date: 20200409
  Serious: Yes (Other)
  Sender: FDA-Public Use
  Company Number: US-BRISTOL-MYERS SQUIBB COMPANY-BMS-2019-078068

PATIENT
  Age: 42 Year
  Sex: Female

DRUGS (3)
  1. SPRYCEL [Suspect]
     Active Substance: DASATINIB
     Indication: PRODUCT USED FOR UNKNOWN INDICATION
     Dosage: 100 MILLIGRAM, QD
     Route: 048
     Dates: start: 20190701
  2. SPRYCEL [Suspect]
     Active Substance: DASATINIB
     Indication: PRODUCT USED FOR UNKNOWN INDICATION
     Dosage: 100 MILLIGRAM, QD
     Route: 048
     Dates: start: 20190702
  3. SPRYCEL [Suspect]
     Active Substance: DASATINIB
     Indication: CHRONIC MYELOID LEUKAEMIA
     Dosage: 100 MILLIGRAM, QD
     Route: 048
     Dates: start: 20190627

REACTIONS (15)
  - Emergency care examination [Unknown]
  - Peripheral swelling [Unknown]
  - Fatigue [Unknown]
  - Flatulence [Unknown]
  - Abdominal distension [Unknown]
  - Erythema [Unknown]
  - Rash [Unknown]
  - Chest pain [Unknown]
  - Nasopharyngitis [Unknown]
  - Bone pain [Unknown]
  - Oedema peripheral [Unknown]
  - Neuropathy peripheral [Recovering/Resolving]
  - Migraine [Unknown]
  - Pain in extremity [Unknown]
  - Abdominal pain [Unknown]

NARRATIVE: CASE EVENT DATE: 20200117
